FAERS Safety Report 7278110-3 (Version None)
Quarter: 2011Q1

REPORT INFORMATION
  Report Type: 
  Country: None (occurrence: None)
  Receive Date: 20110207
  Receipt Date: 20110131
  Transmission Date: 20110831
  Serious: Yes (Death, Hospitalization)
  Sender: FDA-Public Use
  Company Number: JP-BRISTOL-MYERS SQUIBB COMPANY-15481997

PATIENT
  Age: 77 Year
  Sex: Female

DRUGS (12)
  1. ORENCIA [Suspect]
     Indication: RHEUMATOID ARTHRITIS
     Dosage: ON 1NOV10 RECEIVED EVERY 4WKS 25OCT10:250MG 8NOV10:500MG 22NOV10:500MG 21DEC10:500MG
     Route: 041
     Dates: start: 20101025
  2. ISCOTIN [Concomitant]
  3. FOSAMAC [Concomitant]
  4. ITRACONAZOLE [Concomitant]
  5. ACTEMRA [Concomitant]
     Dates: start: 20080819, end: 20100916
  6. AMARYL [Concomitant]
  7. LANSOPRAZOLE [Concomitant]
     Indication: REFLUX OESOPHAGITIS
  8. TACROLIMUS [Concomitant]
  9. PREDONINE [Concomitant]
     Indication: RHEUMATOID ARTHRITIS
     Dosage: DOSE UNIT:1 TABS DOSE INCREASED TO 30MG/KG
  10. KENTAN [Concomitant]
     Indication: RHEUMATOID ARTHRITIS
  11. PROCYLIN [Concomitant]
     Indication: CARDIOVASCULAR DISORDER
  12. REBAMIPIDE [Concomitant]
     Indication: GASTRITIS PROPHYLAXIS

REACTIONS (4)
  - PNEUMONIA [None]
  - RESPIRATORY FAILURE [None]
  - INTERSTITIAL LUNG DISEASE [None]
  - BRONCHOPULMONARY ASPERGILLOSIS [None]
